FAERS Safety Report 4944454-0 (Version None)
Quarter: 2006Q1

REPORT INFORMATION
  Report Type: 
  Country: None (occurrence: None)
  Receive Date: 20060104
  Receipt Date: 20050817
  Transmission Date: 20060701
  Serious: Yes (Hospitalization)
  Sender: FDA-Public Use
  Company Number: A03200502530

PATIENT
  Age: 64 Year
  Sex: Female
  Weight: 85.7298 kg

DRUGS (8)
  1. ELOXATIN [Suspect]
     Indication: COLORECTAL CANCER
     Dosage: MG OTHER-INTRAVENOUS NOS
     Route: 042
     Dates: start: 20050801, end: 20050801
  2. NORVASC [Suspect]
     Indication: HYPERTENSION
     Dosage: 10 MG QD - ORAL
     Route: 048
     Dates: start: 20041207, end: 20050812
  3. LISINOPRIL [Suspect]
     Indication: HYPERTENSION
     Dosage: 20 MG- QD- ORAL
     Route: 048
     Dates: start: 20041223, end: 20050814
  4. FLUOROURACIL [Concomitant]
  5. LEUCOVORIN CALCIUM [Concomitant]
  6. PALONOSETRON [Concomitant]
  7. DEXAMETHASONE TAB [Concomitant]
  8. INSULIN [Concomitant]

REACTIONS (3)
  - HYPERSENSITIVITY [None]
  - RESPIRATORY DISTRESS [None]
  - SWOLLEN TONGUE [None]
